FAERS Safety Report 25993397 (Version 1)
Quarter: 2025Q4

REPORT INFORMATION
  Report Type: Spontaneous
  Country: LB (occurrence: LB)
  Receive Date: 20251104
  Receipt Date: 20251104
  Transmission Date: 20260118
  Serious: Yes (Hospitalization)
  Sender: STRIDES
  Company Number: LB-STRIDES ARCOLAB LIMITED-2025SP013497

PATIENT
  Age: 22 Year
  Sex: Male

DRUGS (3)
  1. SERTRALINE [Suspect]
     Active Substance: SERTRALINE HYDROCHLORIDE
     Indication: Pruritus
     Dosage: 50 MILLIGRAM, OD
     Route: 065
  2. FEXOFENADINE [Concomitant]
     Active Substance: FEXOFENADINE HYDROCHLORIDE
     Indication: Pruritus
     Dosage: 180 MILLIGRAM, BID
     Route: 065
  3. CHOLESTYRAMINE [Concomitant]
     Active Substance: CHOLESTYRAMINE
     Indication: Product used for unknown indication
     Dosage: 4 GRAM, TID
     Route: 065

REACTIONS (4)
  - Ammonia decreased [Recovered/Resolved]
  - Mental status changes [Unknown]
  - Hypoglycaemia [Recovered/Resolved]
  - Off label use [Unknown]
